FAERS Safety Report 6081224-7 (Version None)
Quarter: 2009Q1

REPORT INFORMATION
  Report Type: 
  Country: None (occurrence: None)
  Receive Date: 20090213
  Receipt Date: 20090127
  Transmission Date: 20090719
  Serious: Yes (Other)
  Sender: FDA-Public Use
  Company Number: 8040017

PATIENT
  Age: 35 Year
  Sex: Female
  Weight: 85 kg

DRUGS (6)
  1. CIMZIA [Suspect]
     Indication: CROHN'S DISEASE
     Dosage: 400 G 1/2W SC
     Route: 058
     Dates: start: 20081021, end: 20081117
  2. PENTASA [Concomitant]
  3. NEXIUM [Concomitant]
  4. AZATHIOPRINE [Concomitant]
  5. HYOSCYAMINE [Concomitant]
  6. HYDROCODONE BITARTRATE + ACETAMINOPHEN [Concomitant]

REACTIONS (9)
  - ARTHRALGIA [None]
  - BLISTER [None]
  - CHEST DISCOMFORT [None]
  - COXSACKIE VIRAL INFECTION [None]
  - DYSPNOEA [None]
  - LUNG DISORDER [None]
  - MYALGIA [None]
  - PSORIASIS [None]
  - ULCER [None]
